FAERS Safety Report 6728066-4 (Version None)
Quarter: 2010Q2

REPORT INFORMATION
  Report Type: 
  Country: None (occurrence: None)
  Receive Date: 20100512
  Receipt Date: 20100331
  Transmission Date: 20101027
  Serious: Yes (Death)
  Sender: FDA-Public Use
  Company Number: 1000012024

PATIENT
  Age: 56 Year
  Sex: Female
  Weight: 90.7194 kg

DRUGS (18)
  1. SAVELLA [Suspect]
     Indication: FIBROMYALGIA
     Dosage: 12.5 MG (12.5 MG,1 IN 1 D),ORAL; 25 MG (12.5 MG,2 IN 1 D), ORAL; 50 MG (25 GBQ,2 IN 1 D),ORAL
     Route: 048
     Dates: start: 20090608, end: 20090608
  2. SAVELLA [Suspect]
     Indication: FIBROMYALGIA
     Dosage: 12.5 MG (12.5 MG,1 IN 1 D),ORAL; 25 MG (12.5 MG,2 IN 1 D), ORAL; 50 MG (25 GBQ,2 IN 1 D),ORAL
     Route: 048
     Dates: start: 20090609, end: 20090610
  3. SAVELLA [Suspect]
     Indication: FIBROMYALGIA
     Dosage: 12.5 MG (12.5 MG,1 IN 1 D),ORAL; 25 MG (12.5 MG,2 IN 1 D), ORAL; 50 MG (25 GBQ,2 IN 1 D),ORAL
     Route: 048
     Dates: start: 20090611, end: 20090614
  4. SAVELLA [Suspect]
     Indication: FIBROMYALGIA
     Dosage: 100 MG (50 MG,2 IN 1 D),ORAL
     Route: 048
     Dates: start: 20090615, end: 20090909
  5. AMITRIPTYLINE [Concomitant]
  6. ULTRAM [Concomitant]
  7. FLEXERIL [Concomitant]
  8. MULTI-VITAMINS [Concomitant]
  9. MELATONIN [Concomitant]
  10. MYLANTA [Concomitant]
  11. ZOMIG [Concomitant]
  12. CELEBREX [Concomitant]
  13. FISH OIL [Concomitant]
  14. FLAX SEED OIL [Concomitant]
  15. NEURONTIN [Concomitant]
  16. KLONOPIN [Concomitant]
  17. KAPIDEX [Concomitant]
  18. ATIVAN [Concomitant]

REACTIONS (1)
  - DEATH [None]
